FAERS Safety Report 8802993 (Version 1)
Quarter: 2012Q4

REPORT INFORMATION
  Report Type: 
  Country: DE (occurrence: DE)
  Receive Date: 20120924
  Receipt Date: 20120924
  Transmission Date: 20130627
  Serious: Yes (Hospitalization)
  Sender: FDA-Public Use
  Company Number: DE-PFIZER INC-2012213884

PATIENT
  Age: 63 Year
  Sex: Male
  Weight: 69 kg

DRUGS (8)
  1. GENOTROPIN [Suspect]
     Indication: GROWTH HORMONE DEFICIENCY
     Dosage: 0.1 mg, 7/wk
     Route: 058
     Dates: start: 20010808
  2. DESMOPRESSIN [Concomitant]
     Indication: BLOOD ANTIDIURETIC HORMONE DECREASED
     Dosage: UNK
     Dates: start: 19780101
  3. CORTISONE ^CIBA-GEIGY^ [Concomitant]
     Indication: BLOOD CORTICOTROPHIN DECREASED
     Dosage: UNK
     Dates: start: 20070904
  4. LEVOTHYROXINE [Concomitant]
     Indication: BLOOD THYROID STIMULATING HORMONE DECREASED
     Dosage: UNK
     Dates: start: 19780101
  5. LEVOTHYROXINE [Concomitant]
     Indication: PRIMARY HYPOTHYROIDISM
  6. NEBIDO 1000 [Concomitant]
     Indication: BLOOD LUTEINISING HORMONE DECREASED
     Dosage: UNK
     Dates: start: 20070904
  7. NEBIDO 1000 [Concomitant]
     Indication: BLOOD FOLLICLE STIMULATING HORMONE DECREASED
  8. NEBIDO 1000 [Concomitant]
     Indication: HYPOGONADISM MALE

REACTIONS (1)
  - Pericarditis [Unknown]
